FAERS Safety Report 11222363 (Version 2)
Quarter: 2015Q2

REPORT INFORMATION
  Report Type: Report from Study
  Country: DE (occurrence: DE)
  Receive Date: 20150626
  Receipt Date: 20150626
  Transmission Date: 20150821
  Serious: Yes (Hospitalization)
  Sender: FDA-Public Use
  Company Number: DE-TEVA-572148GER

PATIENT
  Age: 65 Year
  Sex: Female
  Weight: 60 kg

DRUGS (4)
  1. CARBOPLATIN. [Suspect]
     Active Substance: CARBOPLATIN
     Indication: BREAST CANCER FEMALE
     Dosage: LAST DOSE PRIOR TO SAE: 09-JUN-2015
     Route: 042
     Dates: start: 20150203
  2. MYOCET [Suspect]
     Active Substance: DOXORUBICIN
     Indication: BREAST CANCER FEMALE
     Dosage: LAST DOSE PRIOR TO SAE: 09-JUN-2015
     Route: 042
     Dates: start: 20150203
  3. BISOPROLOL [Concomitant]
     Active Substance: BISOPROLOL
     Dosage: 2.5 MILLIGRAM DAILY;
     Dates: start: 20150306
  4. PACLITAXEL. [Suspect]
     Active Substance: PACLITAXEL
     Indication: BREAST CANCER FEMALE
     Dosage: LAST DOSE PRIOR TO SAE: 09-JUN-2015
     Route: 042
     Dates: start: 20150203

REACTIONS (1)
  - Pyrexia [Not Recovered/Not Resolved]

NARRATIVE: CASE EVENT DATE: 20150618
